FAERS Safety Report 24794249 (Version 1)
Quarter: 2024Q4

REPORT INFORMATION
  Report Type: Spontaneous
  Country: IT (occurrence: IT)
  Receive Date: 20241231
  Receipt Date: 20241231
  Transmission Date: 20250115
  Serious: Yes (Other)
  Sender: LABORATOIRES SERB
  Company Number: IT-SERB S.A.S.-2168117

PATIENT
  Age: 82 Year
  Sex: Male

DRUGS (5)
  1. DIGIFAB [Suspect]
     Active Substance: OVINE DIGOXIN IMMUNE FAB
     Indication: Toxicity to various agents
  2. METFORMIN [Suspect]
     Active Substance: METFORMIN HYDROCHLORIDE
  3. TELMISARTAN [Suspect]
     Active Substance: TELMISARTAN
  4. APIXABAN [Suspect]
     Active Substance: APIXABAN
  5. DIGOXIN [Suspect]
     Active Substance: DIGOXIN

REACTIONS (1)
  - Therapeutic product effect incomplete [Unknown]
